FAERS Safety Report 9565831 (Version 3)
Quarter: 2013Q4

REPORT INFORMATION
  Report Type: Spontaneous
  Country: US (occurrence: US)
  Receive Date: 20130930
  Receipt Date: 20131203
  Transmission Date: 20140711
  Serious: Yes (Hospitalization, Other)
  Sender: FDA-Public Use
  Company Number: US-ROXANE LABORATORIES, INC.-2013-RO-01595RO

PATIENT
  Age: 67 Year
  Sex: Female

DRUGS (3)
  1. LITHIUM CARBONATE [Suspect]
     Dosage: 750 MG
     Route: 048
  2. LITHIUM CARBONATE [Suspect]
     Route: 048
  3. KLONOPIN [Concomitant]

REACTIONS (16)
  - Confusional state [Recovered/Resolved]
  - Atrioventricular block [Unknown]
  - Panic attack [Not Recovered/Not Resolved]
  - Blood calcium increased [Not Recovered/Not Resolved]
  - Somnolence [Unknown]
  - Tremor [Recovered/Resolved]
  - Weight increased [Unknown]
  - Alopecia [Unknown]
  - Insomnia [Unknown]
  - Amnesia [Not Recovered/Not Resolved]
  - Dry skin [Not Recovered/Not Resolved]
  - Headache [Not Recovered/Not Resolved]
  - Photophobia [Not Recovered/Not Resolved]
  - Oral discomfort [Not Recovered/Not Resolved]
  - Wrong technique in drug usage process [Not Recovered/Not Resolved]
  - Parathyroid disorder [Not Recovered/Not Resolved]
